FAERS Safety Report 7488757-7 (Version None)
Quarter: 2011Q2

REPORT INFORMATION
  Report Type: 
  Country: None (occurrence: None)
  Receive Date: 20110511
  Receipt Date: 20110426
  Transmission Date: 20111010
  Serious: Yes (Other)
  Sender: FDA-Public Use
  Company Number: AUR-APU-2011-01472

PATIENT
  Age: 73 Year
  Sex: Female

DRUGS (2)
  1. ASPIRIN [Concomitant]
  2. ALENDRONATE SODIUM [Suspect]
     Indication: RHEUMATOID ARTHRITIS
     Dosage: 70MG-WEEKLY
     Dates: start: 20110201

REACTIONS (3)
  - BONE DISORDER [None]
  - GAIT DISTURBANCE [None]
  - TREMOR [None]
